FAERS Safety Report 17072477 (Version 1)
Quarter: 2019Q4

REPORT INFORMATION
  Report Type: Spontaneous
  Country: US (occurrence: US)
  Receive Date: 20191124
  Receipt Date: 20191124
  Transmission Date: 20200122
  Serious: No
  Sender: FDA-Public Use
  Company Number: None

PATIENT
  Age: 38 Year
  Sex: Female
  Weight: 99 kg

DRUGS (1)
  1. SWEATBLOCK [Suspect]
     Active Substance: ALUMINUM CHLORIDE
     Indication: HYPERHIDROSIS
     Dates: start: 20191117, end: 20191117

REACTIONS (1)
  - Dermatitis contact [None]

NARRATIVE: CASE EVENT DATE: 20191117
